FAERS Safety Report 7794891-4 (Version None)
Quarter: 2011Q4

REPORT INFORMATION
  Report Type: 
  Country: None (occurrence: None)
  Receive Date: 20111004
  Receipt Date: 20110922
  Transmission Date: 20120403
  Serious: Yes (Hospitalization)
  Sender: FDA-Public Use
  Company Number: PHHY2011JP74868

PATIENT
  Sex: Male
  Weight: 42 kg

DRUGS (9)
  1. MYCOPHENOLATE MOFETIL (CELLCEPT) [Suspect]
     Indication: RENAL TRANSPLANT
     Dosage: 1000 MG, DAILY
     Route: 048
     Dates: start: 20090806, end: 20101127
  2. CYCLOSPORINE [Suspect]
     Indication: RENAL TRANSPLANT
     Dosage: 120 MG, DAILY
     Route: 048
     Dates: start: 20090806
  3. CYCLOSPORINE [Suspect]
     Indication: IMMUNOSUPPRESSION
  4. MYCOPHENOLATE MOFETIL (CELLCEPT) [Suspect]
     Dosage: 1000 MG, DAILY
     Route: 048
     Dates: start: 20110117, end: 20110224
  5. MEDROL [Suspect]
     Indication: RENAL TRANSPLANT
     Dosage: 4 MG, EVERY SECOND DAY
     Route: 048
     Dates: start: 20090806, end: 20101127
  6. MYCOPHENOLATE MOFETIL (CELLCEPT) [Suspect]
     Dosage: 500 MG, DAILY DIVIDED INTO TWO DOSES
     Route: 048
     Dates: start: 20110225
  7. MEDROL [Suspect]
     Dosage: 4MG EVERY SECOND DAY DIVIDED INTO 2 DOSES
     Dates: start: 20110117
  8. METHYLPREDNISOLONE [Concomitant]
     Indication: RENAL TRANSPLANT
     Dosage: UNK UKN, UNK
     Route: 048
  9. MEDROL [Suspect]
     Dosage: 4 MG, DAILY
     Route: 048
     Dates: start: 20101128, end: 20110116

REACTIONS (6)
  - BONE MARROW FAILURE [None]
  - DIARRHOEA [None]
  - CYTOMEGALOVIRUS TEST POSITIVE [None]
  - CYTOMEGALOVIRUS INFECTION [None]
  - PYREXIA [None]
  - PLATELET COUNT DECREASED [None]
